FAERS Safety Report 24358621 (Version 1)
Quarter: 2024Q3

REPORT INFORMATION
  Report Type: Spontaneous
  Country: US (occurrence: US)
  Receive Date: 20240924
  Receipt Date: 20240924
  Transmission Date: 20241017
  Serious: No
  Sender: TEVA
  Company Number: US-TEVA-VS-3241070

PATIENT
  Age: 23 Year
  Sex: Female

DRUGS (5)
  1. EMLA [Suspect]
     Active Substance: LIDOCAINE\PRILOCAINE
     Indication: Infusion site pain
     Route: 065
     Dates: start: 202408
  2. REMODULIN [Suspect]
     Active Substance: TREPROSTINIL
     Indication: Pulmonary arterial hypertension
     Dosage: 0.251 ?G/KG,
     Route: 065
     Dates: start: 202201
  3. TADALAFIL [Concomitant]
     Active Substance: TADALAFIL
  4. OPSUMIT [Concomitant]
     Active Substance: MACITENTAN
  5. WINREVAIR [Concomitant]
     Active Substance: SOTATERCEPT-CSRK
     Dates: start: 20240705

REACTIONS (1)
  - Therapy non-responder [Unknown]
